FAERS Safety Report 7259256-2 (Version None)
Quarter: 2011Q1

REPORT INFORMATION
  Report Type: 
  Country: None (occurrence: None)
  Receive Date: 20110129
  Receipt Date: 20100814
  Transmission Date: 20110831
  Serious: No
  Sender: FDA-Public Use
  Company Number: US-ABBOTT-10P-163-0664255-00

PATIENT
  Age: 63 Year
  Sex: Female

DRUGS (8)
  1. LEVOTHYROXINE SODIUM [Concomitant]
     Indication: THYROID FUNCTION TEST ABNORMAL
  2. FLAXSEED OIL [Concomitant]
     Indication: SUPPLEMENTATION THERAPY
  3. LOVAZA [Concomitant]
     Indication: VITAMIN SUPPLEMENTATION
  4. EVISTA [Concomitant]
     Indication: OSTEOPENIA
  5. CENTRUM SILVER [Concomitant]
     Indication: VITAMIN SUPPLEMENTATION
  6. HUMIRA [Suspect]
     Indication: PSORIATIC ARTHROPATHY
     Dates: start: 20100814
  7. PREDNISONE [Concomitant]
     Indication: ARTHRITIS
  8. OMEPRAZOLE [Concomitant]
     Indication: DYSPEPSIA

REACTIONS (4)
  - INJECTION SITE HAEMORRHAGE [None]
  - DIZZINESS [None]
  - ASTHENIA [None]
  - HYPERHIDROSIS [None]
